FAERS Safety Report 10048805 (Version 1)
Quarter: 2014Q1

REPORT INFORMATION
  Report Type: Spontaneous
  Country: GB (occurrence: GB)
  Receive Date: 20140331
  Receipt Date: 20140331
  Transmission Date: 20141002
  Serious: Yes (Congenital Anomaly)
  Sender: FDA-Public Use
  Company Number: PHHY2014GB034513

PATIENT
  Sex: 0

DRUGS (2)
  1. CITALOPRAM [Suspect]
     Indication: DEPRESSION
     Dosage: 30 MG, UNK
     Route: 064
     Dates: start: 20111117
  2. CITALOPRAM [Suspect]
     Dosage: 10 MG, UNK
     Route: 064

REACTIONS (2)
  - Fallot^s tetralogy [Unknown]
  - Exposure during pregnancy [Unknown]
